FAERS Safety Report 9054046 (Version 2)
Quarter: 2013Q1

REPORT INFORMATION
  Report Type: Spontaneous
  Country: JP (occurrence: JP)
  Receive Date: 20130208
  Receipt Date: 20130318
  Transmission Date: 20140127
  Serious: No
  Sender: FDA-Public Use
  Company Number: JP-ASTELLAS-2013US001376

PATIENT
  Age: 73 Year
  Sex: Female

DRUGS (2)
  1. TARCEVA [Suspect]
     Indication: LUNG NEOPLASM MALIGNANT
     Dosage: UNK
     Route: 048
  2. TARCEVA [Suspect]
     Dosage: 2 WEEKS ON, ONE WEEK OFF

REACTIONS (3)
  - Gait disturbance [Recovered/Resolved]
  - Paronychia [Recovered/Resolved]
  - Ingrowing nail [Recovered/Resolved]
